FAERS Safety Report 8517086-5 (Version None)
Quarter: 2012Q3

REPORT INFORMATION
  Report Type: 
  Country: None (occurrence: None)
  Receive Date: 20120718
  Receipt Date: 20080921
  Transmission Date: 20120928
  Serious: Yes (Other)
  Sender: FDA-Public Use
  Company Number: CO-PFIZER INC-2012170705

PATIENT
  Age: 37 Year
  Sex: Female

DRUGS (8)
  1. OLMESARTAN MEDOXOMIL [Suspect]
     Dosage: 20 MG, 1X/DAY
     Route: 065
  2. LIPITOR [Suspect]
     Dosage: 10 MG, 1X/DAY
     Route: 065
  3. ACETYLSALICYLIC ACID [Concomitant]
     Dosage: 100 MG, 1X/DAY
  4. LIPITOR [Suspect]
     Dosage: 20 MG, 1X/DAY
     Route: 065
  5. ENALAPRIL MALEATE [Concomitant]
     Dosage: 20 MG, 1X/DAY
  6. LIPITOR [Suspect]
     Dosage: 20 MG, 1X/DAY
     Route: 065
  7. FUROSEMIDE [Concomitant]
     Dosage: 40 MG, 1X/DAY
  8. METOPROLOL TARTRATE [Concomitant]
     Dosage: 50 MG, 2X/DAY

REACTIONS (3)
  - ACUTE MYOCARDIAL INFARCTION [None]
  - HAEMATURIA [None]
  - PYURIA [None]
